FAERS Safety Report 5281928-X (Version None)
Quarter: 2007Q1

REPORT INFORMATION
  Report Type: 
  Country: None (occurrence: None)
  Receive Date: 20070330
  Receipt Date: 20070316
  Transmission Date: 20070707
  Serious: Yes (Death, Other)
  Sender: FDA-Public Use
  Company Number: US-ELI_LILLY_AND_COMPANY-US200703003475

PATIENT
  Age: 59 Year
  Sex: Female

DRUGS (3)
  1. PROZAC [Suspect]
     Indication: DEPRESSION
     Dosage: 30 MG, UNK
     Dates: start: 20061201
  2. AMITRIPTYLINE HCL [Concomitant]
     Dosage: 75 MG, UNK
  3. RANITIDINE [Concomitant]
     Dosage: 150 MG, 3/D

REACTIONS (2)
  - DRUG INTERACTION [None]
  - MITRAL VALVE PROLAPSE [None]
